FAERS Safety Report 4716560-7 (Version None)
Quarter: 2005Q3

REPORT INFORMATION
  Report Type: 
  Country: None (occurrence: None)
  Receive Date: 20050714
  Receipt Date: 20050705
  Transmission Date: 20060218
  Serious: Yes (Hospitalization)
  Sender: FDA-Public Use
  Company Number: RENA-11433

PATIENT
  Age: 73 Year
  Sex: Male

DRUGS (1)
  1. PHOSBLOCK - 250 MG TABLET [Suspect]
     Indication: HYPERPHOSPHATAEMIA
     Dosage: 1 G DAILY PO
     Route: 048
     Dates: start: 20050309, end: 20050323

REACTIONS (1)
  - ILEUS [None]
